APPROVED DRUG PRODUCT: MORPHINE SULFATE
Active Ingredient: MORPHINE SULFATE
Strength: 10MG/5ML
Dosage Form/Route: SOLUTION;ORAL
Application: N022195 | Product #001 | TE Code: AA
Applicant: HIKMA PHARMACEUTICALS USA INC
Approved: Mar 17, 2008 | RLD: Yes | RS: No | Type: RX